FAERS Safety Report 12966781 (Version 1)
Quarter: 2016Q4

REPORT INFORMATION
  Report Type: Spontaneous
  Country: US (occurrence: US)
  Receive Date: 20161121
  Receipt Date: 20161121
  Transmission Date: 20170207
  Serious: No
  Sender: FDA-Public Use
  Company Number: None

PATIENT
  Age: 46 Year
  Sex: Female

DRUGS (1)
  1. HUMIRA [Suspect]
     Active Substance: ADALIMUMAB
     Dosage: 40MG TWICE A MONTH SQ
     Route: 058
     Dates: start: 20160718, end: 20161001

REACTIONS (4)
  - Skin atrophy [None]
  - Laceration [None]
  - Candida infection [None]
  - Urticaria [None]

NARRATIVE: CASE EVENT DATE: 20161001
